FAERS Safety Report 5050516-2 (Version None)
Quarter: 2006Q3

REPORT INFORMATION
  Report Type: 
  Country: None (occurrence: None)
  Receive Date: 20060707
  Receipt Date: 20060621
  Transmission Date: 20061208
  Serious: Yes (Hospitalization)
  Sender: FDA-Public Use
  Company Number: 226259

PATIENT
  Age: 59 Year
  Sex: Male
  Weight: 92 kg

DRUGS (7)
  1. AVASTIN [Suspect]
     Indication: COLON CANCER
     Dosage: 460 MG, Q2W, INTRAVENOUS
     Route: 042
     Dates: start: 20051213, end: 20060321
  2. OXALIPLATIN(OXALIPLATIN) [Suspect]
     Indication: COLON CANCER
     Dosage: 178 MG, Q2W, INTRAVENOUS; 157.5 MG
     Route: 042
     Dates: start: 20051213
  3. OXALIPLATIN(OXALIPLATIN) [Suspect]
     Indication: COLON CANCER
     Dosage: 178 MG, Q2W, INTRAVENOUS; 157.5 MG
     Route: 042
     Dates: start: 20060321
  4. FLUOROURACIL [Suspect]
     Indication: COLON CANCER
     Dosage: 840 MG, INTRAVENOUS; 630 MG, IV BOLUS; 1050 MG
     Route: 042
     Dates: start: 20051213
  5. FLUOROURACIL [Suspect]
     Indication: COLON CANCER
     Dosage: 840 MG, INTRAVENOUS; 630 MG, IV BOLUS; 1050 MG
     Route: 042
     Dates: start: 20060321
  6. LEUCOVORIN CALCIUM [Suspect]
     Indication: COLON CANCER
     Dosage: 420 MG, INTRAVENOUS
     Route: 042
     Dates: start: 20051213
  7. NEORECORMON (EPOETIN BETA) [Concomitant]

REACTIONS (11)
  - ABDOMINAL PAIN [None]
  - BONE DENSITY DECREASED [None]
  - FEBRILE NEUTROPENIA [None]
  - GASTRITIS [None]
  - HAEMATOCRIT DECREASED [None]
  - HAEMOGLOBIN DECREASED [None]
  - LOWER RESPIRATORY TRACT INFECTION [None]
  - OESOPHAGITIS [None]
  - PANCREATITIS [None]
  - PLATELET COUNT INCREASED [None]
  - PLEURAL EFFUSION [None]
